FAERS Safety Report 9030339 (Version 1)
Quarter: 2013Q1

REPORT INFORMATION
  Report Type: Spontaneous
  Country: BR (occurrence: BR)
  Receive Date: 20130122
  Receipt Date: 20130122
  Transmission Date: 20140127
  Serious: Yes (Hospitalization)
  Sender: FDA-Public Use
  Company Number: BR-PFIZER INC-2013017733

PATIENT
  Age: 66 Year
  Sex: Female
  Weight: 62 kg

DRUGS (1)
  1. XALATAN [Suspect]
     Indication: GLAUCOMA
     Dosage: TWO DROPS, 2X/DAY
     Route: 047
     Dates: start: 20080115

REACTIONS (5)
  - Intraocular pressure increased [Unknown]
  - Chest pain [Unknown]
  - Blood pressure increased [Unknown]
  - Feeling abnormal [Unknown]
  - Off label use [Not Recovered/Not Resolved]
